FAERS Safety Report 19190336 (Version 2)
Quarter: 2021Q2

REPORT INFORMATION
  Report Type: Spontaneous
  Country: US (occurrence: US)
  Receive Date: 20210428
  Receipt Date: 20210527
  Transmission Date: 20210717
  Serious: No
  Sender: FDA-Public Use
  Company Number: US-ASTRAZENECA-2021A324577

PATIENT
  Age: 25066 Day
  Sex: Female

DRUGS (1)
  1. BYDUREON BCISE [Suspect]
     Active Substance: EXENATIDE
     Indication: GLYCOSYLATED HAEMOGLOBIN INCREASED
     Dosage: ONCE A WEEK
     Route: 065
     Dates: start: 20210411

REACTIONS (6)
  - Injection site irritation [Unknown]
  - Injection site haemorrhage [Recovered/Resolved]
  - Pain [Unknown]
  - Drug delivery system malfunction [Unknown]
  - Liquid product physical issue [Unknown]
  - Wrong technique in product usage process [Unknown]

NARRATIVE: CASE EVENT DATE: 20210411
